FAERS Safety Report 19052160 (Version 1)
Quarter: 2021Q1

REPORT INFORMATION
  Report Type: Spontaneous
  Country: US (occurrence: US)
  Receive Date: 20210324
  Receipt Date: 20210324
  Transmission Date: 20210420
  Serious: No
  Sender: FDA-Public Use
  Company Number: US-GLAXOSMITHKLINE-USCH2021013888

PATIENT

DRUGS (4)
  1. ADVIL [Suspect]
     Active Substance: IBUPROFEN
     Indication: HEADACHE
  2. ADVIL [Suspect]
     Active Substance: IBUPROFEN
     Indication: MYALGIA
  3. ADVIL [Suspect]
     Active Substance: IBUPROFEN
     Indication: MUSCLE SPASMS
  4. ADVIL [Suspect]
     Active Substance: IBUPROFEN
     Indication: PAIN
     Dosage: UNK

REACTIONS (2)
  - Nausea [Unknown]
  - Inappropriate schedule of product administration [Unknown]
